FAERS Safety Report 9080065 (Version 2)
Quarter: 2013Q2

REPORT INFORMATION
  Report Type: Spontaneous
  Country: GB (occurrence: GB)
  Receive Date: 20130218
  Receipt Date: 20130617
  Transmission Date: 20140414
  Serious: Yes (Other)
  Sender: FDA-Public Use
  Company Number: PHHY2013GB014158

PATIENT
  Sex: Male

DRUGS (1)
  1. CITALOPRAM [Suspect]
     Dosage: UNK UKN, UNK

REACTIONS (5)
  - Food craving [Unknown]
  - Anxiety [Unknown]
  - Fatigue [Unknown]
  - Myalgia [Unknown]
  - Irritability [Unknown]
